FAERS Safety Report 14344662 (Version 1)
Quarter: 2018Q1

REPORT INFORMATION
  Report Type: Spontaneous
  Country: US (occurrence: US)
  Receive Date: 20180103
  Receipt Date: 20180103
  Transmission Date: 20180509
  Serious: Yes (Hospitalization)
  Sender: FDA-Public Use
  Company Number: US-ROCHE-2048887

PATIENT
  Sex: Female

DRUGS (24)
  1. LIDOCAINE. [Concomitant]
     Active Substance: LIDOCAINE
  2. NYSTATIN. [Concomitant]
     Active Substance: NYSTATIN
  3. VITAMIN D3 [Concomitant]
     Active Substance: CHOLECALCIFEROL
  4. DILTIAZEM. [Concomitant]
     Active Substance: DILTIAZEM
  5. VENTOLIN HFA [Concomitant]
     Active Substance: ALBUTEROL SULFATE
  6. AUGMENTIN [Concomitant]
     Active Substance: AMOXICILLIN\CLAVULANATE POTASSIUM
  7. ADVAIR HFA [Concomitant]
     Active Substance: FLUTICASONE PROPIONATE\SALMETEROL XINAFOATE
  8. FLUTICASONE. [Concomitant]
     Active Substance: FLUTICASONE
  9. WARFARIN [Concomitant]
     Active Substance: WARFARIN
  10. ISOSORBID MONONITRATE [Concomitant]
     Active Substance: ISOSORBIDE MONONITRATE
  11. INSULIN [Concomitant]
     Active Substance: INSULIN NOS
  12. BREO ELLIPTA [Concomitant]
     Active Substance: FLUTICASONE FUROATE\VILANTEROL TRIFENATATE
  13. METHIMAZOLE. [Concomitant]
     Active Substance: METHIMAZOLE
  14. EPIPEN [Concomitant]
     Active Substance: EPINEPHRINE
  15. LISINOPRIL. [Concomitant]
     Active Substance: LISINOPRIL
  16. AMOXICILLIN. [Concomitant]
     Active Substance: AMOXICILLIN
  17. PREDNISONE. [Concomitant]
     Active Substance: PREDNISONE
  18. ROSUVASTATIN. [Concomitant]
     Active Substance: ROSUVASTATIN
  19. XOLAIR [Suspect]
     Active Substance: OMALIZUMAB
     Indication: ASTHMA
     Route: 058
     Dates: start: 20150508
  20. SINGULAIR [Concomitant]
     Active Substance: MONTELUKAST SODIUM
  21. PROTONIX [Concomitant]
     Active Substance: PANTOPRAZOLE SODIUM
  22. ZYRTEC [Concomitant]
     Active Substance: CETIRIZINE HYDROCHLORIDE
  23. TRIAMCINOLON [Concomitant]
  24. ENOXAPARIN [Concomitant]
     Active Substance: ENOXAPARIN

REACTIONS (1)
  - Asthma [Unknown]
